FAERS Safety Report 15706624 (Version 1)
Quarter: 2018Q4

REPORT INFORMATION
  Report Type: Spontaneous
  Country: JP (occurrence: JP)
  Receive Date: 20181210
  Receipt Date: 20181210
  Transmission Date: 20190205
  Serious: Yes (Hospitalization)
  Sender: FDA-Public Use
  Company Number: JP-PFIZER INC-2018506825

PATIENT
  Age: 68 Year
  Sex: Female

DRUGS (7)
  1. E KEPPRA [Concomitant]
     Active Substance: LEVETIRACETAM
     Dosage: UNK
     Route: 048
  2. MEILAX [Concomitant]
     Active Substance: ETHYL LOFLAZEPATE
     Dosage: UNK
     Route: 048
  3. BENZALIN [NITRAZEPAM] [Concomitant]
     Dosage: UNK
     Route: 048
  4. HYDANTOL [Concomitant]
     Active Substance: PHENYTOIN SODIUM
     Dosage: UNK
     Route: 048
  5. INDOMETACIN [Concomitant]
     Active Substance: INDOMETHACIN
     Dosage: UNK
     Route: 065
  6. CELECOX [Suspect]
     Active Substance: CELECOXIB
     Dosage: UNK
     Route: 048
  7. MUCOSTA [Concomitant]
     Active Substance: REBAMIPIDE
     Dosage: UNK

REACTIONS (1)
  - Epilepsy [Unknown]

NARRATIVE: CASE EVENT DATE: 201712
